FAERS Safety Report 26083253 (Version 1)
Quarter: 2025Q4

REPORT INFORMATION
  Report Type: Spontaneous
  Country: US (occurrence: US)
  Receive Date: 20251124
  Receipt Date: 20251124
  Transmission Date: 20260119
  Serious: No
  Sender: INSMED
  Company Number: US-INSMED, INC.-2025-03014-US

PATIENT
  Sex: Female

DRUGS (3)
  1. ARIKAYCE [Suspect]
     Active Substance: AMIKACIN
     Indication: Mycobacterium avium complex infection
     Dosage: UNK UNK, UNK
  2. ARIKAYCE [Suspect]
     Active Substance: AMIKACIN
     Indication: Bronchiectasis
  3. ARIKAYCE [Suspect]
     Active Substance: AMIKACIN
     Indication: Aspergillus infection

REACTIONS (3)
  - Ear pain [Unknown]
  - Ear discomfort [Unknown]
  - Tinnitus [Unknown]
